FAERS Safety Report 12913085 (Version 4)
Quarter: 2016Q4

REPORT INFORMATION
  Report Type: Spontaneous
  Country: DE (occurrence: DE)
  Receive Date: 20161104
  Receipt Date: 20161229
  Transmission Date: 20170207
  Serious: Yes (Death, Hospitalization, Other)
  Sender: FDA-Public Use
  Company Number: DE-009507513-1611DEU002143

PATIENT
  Age: 85 Year
  Sex: Male
  Weight: 78 kg

DRUGS (2)
  1. KEYTRUDA [Suspect]
     Active Substance: PEMBROLIZUMAB
     Indication: SALIVARY GLAND CANCER
     Dosage: 2 MG PER KG BODY WEIGHT, EVERY THREE WEEKS (SIX INFUSIONS)
     Dates: start: 2016, end: 2016
  2. KEYTRUDA [Suspect]
     Active Substance: PEMBROLIZUMAB
     Indication: METASTASES TO LUNG

REACTIONS (6)
  - Dyspnoea [Unknown]
  - Product use issue [Unknown]
  - Immunisation reaction [Unknown]
  - Pneumonia [Recovering/Resolving]
  - Thyroid function test abnormal [Unknown]
  - Malignant neoplasm progression [Fatal]

NARRATIVE: CASE EVENT DATE: 201610
